FAERS Safety Report 9261150 (Version 1)
Quarter: 2013Q2

REPORT INFORMATION
  Report Type: Spontaneous
  Country: US (occurrence: US)
  Receive Date: 20130429
  Receipt Date: 20130429
  Transmission Date: 20140414
  Serious: Yes (Other)
  Sender: FDA-Public Use
  Company Number: US-GLAXOSMITHKLINE-A1021402A

PATIENT
  Age: 65 Year
  Sex: Female

DRUGS (1)
  1. ABREVA [Suspect]
     Indication: ORAL HERPES
     Route: 061
     Dates: start: 20130404, end: 20130405

REACTIONS (8)
  - Cellulitis [Not Recovered/Not Resolved]
  - Oral herpes [Not Recovered/Not Resolved]
  - Condition aggravated [Not Recovered/Not Resolved]
  - Lip swelling [Not Recovered/Not Resolved]
  - Pain in jaw [Recovered/Resolved]
  - Application site scar [Not Recovered/Not Resolved]
  - Application site scab [Recovered/Resolved]
  - Lip disorder [Not Recovered/Not Resolved]
